FAERS Safety Report 4611751-8 (Version None)
Quarter: 2005Q2

REPORT INFORMATION
  Report Type: 
  Country: None (occurrence: None)
  Receive Date: 20050308
  Receipt Date: 20041209
  Transmission Date: 20051028
  Serious: Yes (Other)
  Sender: FDA-Public Use
  Company Number: 2004UW25181

PATIENT
  Sex: Female

DRUGS (1)
  1. CRESTOR [Suspect]

REACTIONS (3)
  - DISEASE PROGRESSION [None]
  - DYSPNOEA [None]
  - TACHYCARDIA [None]
